FAERS Safety Report 12705084 (Version 1)
Quarter: 2016Q3

REPORT INFORMATION
  Report Type: Spontaneous
  Country: GB (occurrence: GB)
  Receive Date: 20160831
  Receipt Date: 20160831
  Transmission Date: 20161109
  Serious: Yes (Other)
  Sender: FDA-Public Use
  Company Number: GB-ASTRAZENECA-2016SE90457

PATIENT
  Sex: Female

DRUGS (7)
  1. ARIMIDEX [Suspect]
     Active Substance: ANASTROZOLE
     Dosage: ESTONIA
     Route: 065
  2. ARIMIDEX [Suspect]
     Active Substance: ANASTROZOLE
     Dosage: ISRAEL TEVA
     Route: 065
  3. ARIMIDEX [Suspect]
     Active Substance: ANASTROZOLE
     Dosage: TEVA PRODUCT
     Route: 065
     Dates: start: 2012, end: 2013
  4. ARIMIDEX [Suspect]
     Active Substance: ANASTROZOLE
     Dosage: UNKNOWN
     Route: 048
  5. ARIMIDEX [Suspect]
     Active Substance: ANASTROZOLE
     Dosage: ACCORD HEALTHCARE
     Route: 065
     Dates: start: 201305, end: 201305
  6. ARIMIDEX [Suspect]
     Active Substance: ANASTROZOLE
     Dosage: CYPRUS
     Route: 065
  7. OMEPRAZOLE. [Concomitant]
     Active Substance: OMEPRAZOLE
     Dosage: FEW MONTHS
     Dates: start: 2012, end: 2013

REACTIONS (28)
  - Emotional distress [Unknown]
  - Anxiety [Unknown]
  - Drug intolerance [Unknown]
  - Movement disorder [Unknown]
  - Confusional state [Unknown]
  - Stress [Unknown]
  - Product substitution issue [Unknown]
  - Product substitution issue [None]
  - Lip swelling [Unknown]
  - Muscle disorder [Unknown]
  - Withdrawal syndrome [Unknown]
  - Discomfort [Unknown]
  - Mental disorder [Recovered/Resolved]
  - Muscle rupture [None]
  - Paraesthesia oral [Unknown]
  - Menopausal symptoms [Unknown]
  - Fear [Unknown]
  - Swollen tongue [Unknown]
  - Hernia [Unknown]
  - Overdose [Unknown]
  - Abasia [Unknown]
  - Adverse drug reaction [Unknown]
  - Drug hypersensitivity [Unknown]
  - Drug level increased [Unknown]
  - Muscle tightness [Unknown]
  - Speech disorder [Unknown]
  - Condition aggravated [None]
  - Paraesthesia oral [None]
